FAERS Safety Report 4855080-6 (Version None)
Quarter: 2005Q4

REPORT INFORMATION
  Report Type: 
  Country: None (occurrence: None)
  Receive Date: 20051215
  Receipt Date: 20051205
  Transmission Date: 20060501
  Serious: Yes (Other)
  Sender: FDA-Public Use
  Company Number: GB-ABBOTT-05P-167-0318906-00

PATIENT
  Age: 49 Year
  Sex: Male
  Weight: 106 kg

DRUGS (26)
  1. FERROGRAD [Suspect]
     Indication: DRUG USE FOR UNKNOWN INDICATION
  2. WARFARIN [Suspect]
     Indication: DRUG USE FOR UNKNOWN INDICATION
  3. RETINOL [Suspect]
     Indication: DRUG USE FOR UNKNOWN INDICATION
  4. ERGOCALCIFEROL [Suspect]
     Indication: DRUG USE FOR UNKNOWN INDICATION
  5. VITAMIN E ACETATE [Suspect]
     Indication: DRUG USE FOR UNKNOWN INDICATION
  6. ASCORBIC ACID [Suspect]
     Indication: DRUG USE FOR UNKNOWN INDICATION
  7. THIAMINE [Suspect]
     Indication: DRUG USE FOR UNKNOWN INDICATION
  8. RIBOFLAVIN TAB [Suspect]
     Indication: DRUG USE FOR UNKNOWN INDICATION
  9. NICOTINIC ACID [Suspect]
     Indication: DRUG USE FOR UNKNOWN INDICATION
  10. PYRIDOXINE HYDROCHLORIDE INJ [Suspect]
     Indication: DRUG USE FOR UNKNOWN INDICATION
  11. FOLIC ACID [Suspect]
     Indication: DRUG USE FOR UNKNOWN INDICATION
  12. CYANOCOBALAMIN [Suspect]
     Indication: DRUG USE FOR UNKNOWN INDICATION
  13. PANTOTHENIC ACID [Suspect]
     Indication: DRUG USE FOR UNKNOWN INDICATION
  14. CALCIUM GLUCONATE [Suspect]
     Indication: DRUG USE FOR UNKNOWN INDICATION
  15. POTASSIUM [Suspect]
     Indication: DRUG USE FOR UNKNOWN INDICATION
  16. ZINC [Suspect]
     Indication: DRUG USE FOR UNKNOWN INDICATION
  17. COPPER [Suspect]
     Indication: DRUG USE FOR UNKNOWN INDICATION
  18. BETACAROTENE [Suspect]
     Indication: DRUG USE FOR UNKNOWN INDICATION
  19. GINSENG [Suspect]
     Indication: DRUG USE FOR UNKNOWN INDICATION
  20. GINKGO BILOBA [Suspect]
     Indication: DRUG USE FOR UNKNOWN INDICATION
  21. SIMVASTATIN [Concomitant]
     Indication: DRUG USE FOR UNKNOWN INDICATION
  22. SOTALOL HCL [Concomitant]
     Indication: DRUG USE FOR UNKNOWN INDICATION
  23. TRAMADOL HCL [Concomitant]
     Indication: DRUG USE FOR UNKNOWN INDICATION
  24. ISMN [Concomitant]
     Indication: DRUG USE FOR UNKNOWN INDICATION
  25. CETIRIZINE [Concomitant]
     Indication: DRUG USE FOR UNKNOWN INDICATION
  26. DILTIAZEM HYDROCHLORIDE [Concomitant]
     Indication: DRUG USE FOR UNKNOWN INDICATION

REACTIONS (2)
  - DRUG INEFFECTIVE [None]
  - FOOD INTERACTION [None]
